FAERS Safety Report 9626942 (Version 1)
Quarter: 2013Q4

REPORT INFORMATION
  Report Type: Spontaneous
  Country: US (occurrence: None)
  Receive Date: 20131011
  Receipt Date: 20131011
  Transmission Date: 20140711
  Serious: Yes (Death, Other)
  Sender: FDA-Public Use
  Company Number: B0928854A

PATIENT
  Age: 85 Year
  Sex: Female

DRUGS (8)
  1. CARVEDILOL [Suspect]
     Indication: PRODUCT USED FOR UNKNOWN INDICATION
  2. LISINOPRIL [Concomitant]
  3. FRUSEMIDE [Concomitant]
  4. GLIMEPIRIDE [Concomitant]
  5. BUPROPION HYDROCHLORIDE [Concomitant]
  6. HYDRALAZINE [Concomitant]
  7. ISOSORBIDE DINITRATE [Concomitant]
  8. CITALOPRAM [Concomitant]

REACTIONS (6)
  - Toxicity to various agents [None]
  - Asthenia [None]
  - Lethargy [None]
  - Sinus bradycardia [None]
  - Blood pressure diastolic decreased [None]
  - Blood pressure systolic increased [None]
